FAERS Safety Report 6321961-X (Version None)
Quarter: 2009Q3

REPORT INFORMATION
  Report Type: 
  Country: None (occurrence: None)
  Receive Date: 20090824
  Receipt Date: 20090812
  Transmission Date: 20100115
  Serious: Yes (Other)
  Sender: FDA-Public Use
  Company Number: AU-AMGEN-QUU360099

PATIENT
  Sex: Female
  Weight: 64 kg

DRUGS (7)
  1. NEULASTA [Suspect]
     Indication: CHEMOTHERAPY
     Route: 058
     Dates: start: 20090706, end: 20090803
  2. CYCLOPHOSPHAMIDE [Concomitant]
     Route: 048
     Dates: start: 20090302, end: 20090802
  3. METHOTREXATE [Concomitant]
     Route: 042
     Dates: start: 20090302, end: 20090727
  4. FLUOROURACIL [Concomitant]
     Route: 042
     Dates: start: 20090302, end: 20090727
  5. DEXAMETHASONE [Concomitant]
     Dates: start: 20090302, end: 20090727
  6. UNSPECIFIED MEDICATION [Concomitant]
     Dates: start: 20090302, end: 20090727
  7. LEVOTHYROXINE SODIUM [Concomitant]

REACTIONS (4)
  - ANXIETY [None]
  - HYPERSENSITIVITY [None]
  - LARYNGEAL DISORDER [None]
  - URTICARIA [None]
